FAERS Safety Report 7595607-7 (Version None)
Quarter: 2011Q3

REPORT INFORMATION
  Report Type: 
  Country: None (occurrence: None)
  Receive Date: 20110707
  Receipt Date: 20110602
  Transmission Date: 20111222
  Serious: Yes (Hospitalization)
  Sender: FDA-Public Use
  Company Number: JP-GLAXOSMITHKLINE-B0724258A

PATIENT
  Sex: Female

DRUGS (7)
  1. PANVITAN [Concomitant]
     Route: 048
  2. MYSTAN [Concomitant]
     Dosage: .2G PER DAY
     Route: 048
  3. DEPAKENE [Concomitant]
     Dosage: 800MG PER DAY
     Route: 048
  4. FERROUS CITRATE [Concomitant]
     Route: 048
  5. LAMICTAL [Suspect]
     Indication: EPILEPSY
     Dosage: 25MG ALTERNATE DAYS
     Route: 048
     Dates: start: 20110421, end: 20110516
  6. RISPERDAL [Concomitant]
     Route: 048
  7. ZONISAMIDE [Concomitant]
     Dosage: 200MG PER DAY
     Route: 048

REACTIONS (4)
  - STEVENS-JOHNSON SYNDROME [None]
  - RASH GENERALISED [None]
  - MUCOSAL EROSION [None]
  - PYREXIA [None]
